FAERS Safety Report 4649911-2 (Version None)
Quarter: 2005Q2

REPORT INFORMATION
  Report Type: 
  Country: None (occurrence: None)
  Receive Date: 20050428
  Receipt Date: 20050413
  Transmission Date: 20051028
  Serious: Yes (Death, Hospitalization)
  Sender: FDA-Public Use
  Company Number: 2005AP02031

PATIENT
  Age: 76 Year
  Sex: Female
  Weight: 54 kg

DRUGS (14)
  1. IRESSA [Suspect]
     Indication: LUNG ADENOCARCINOMA
     Dosage: 250 MG DAILY PO
     Route: 048
     Dates: start: 20050308, end: 20050314
  2. STEROID PULSE THERAPY [Suspect]
     Dates: start: 20050316
  3. NORVASC [Concomitant]
  4. DEPAS [Concomitant]
  5. GASTROM [Concomitant]
  6. LASIX [Concomitant]
  7. ALDACTONE-A [Concomitant]
  8. NAPROXEN [Concomitant]
  9. PURSENNID [Concomitant]
  10. DUROTEP [Concomitant]
  11. TOFRANIL [Concomitant]
  12. ZANTAC [Concomitant]
  13. BLADDERON [Concomitant]
  14. CARBOPLATIN [Concomitant]

REACTIONS (11)
  - ASTHENIA [None]
  - CARDIO-RESPIRATORY ARREST [None]
  - CHEST PAIN [None]
  - DEPRESSED LEVEL OF CONSCIOUSNESS [None]
  - GLUCOSE TOLERANCE IMPAIRED [None]
  - HYPERKALAEMIA [None]
  - INTERSTITIAL LUNG DISEASE [None]
  - PCO2 INCREASED [None]
  - PERFORMANCE STATUS DECREASED [None]
  - RESPIRATORY FAILURE [None]
  - URINE OUTPUT DECREASED [None]
